FAERS Safety Report 5499414-0 (Version None)
Quarter: 2007Q4

REPORT INFORMATION
  Report Type: 
  Country: None (occurrence: None)
  Receive Date: 20071026
  Receipt Date: 20071023
  Transmission Date: 20080405
  Serious: Yes (Other)
  Sender: FDA-Public Use
  Company Number: B0492188A

PATIENT
  Age: 67 Year
  Sex: Female
  Weight: 101 kg

DRUGS (9)
  1. ROSIGLITAZONE [Suspect]
     Route: 048
     Dates: start: 20060109, end: 20060313
  2. ASPIRIN [Concomitant]
     Route: 048
  3. CYCLOPENTHIAZIDE [Concomitant]
     Dosage: .25MG PER DAY
     Route: 048
  4. AMILORIDE HYDROCHLORIDE [Concomitant]
     Dosage: 2.5MG PER DAY
     Route: 048
  5. LOSARTAN POTASSIUM [Concomitant]
     Route: 048
  6. QUININE SULFATE [Concomitant]
     Dosage: 200MG PER DAY
     Route: 048
  7. GLUCOSAMINE [Concomitant]
     Indication: OSTEOARTHRITIS
  8. IBUPROFEN [Concomitant]
     Indication: OSTEOARTHRITIS
  9. RABEPRAZOLE SODIUM [Concomitant]
     Dosage: 10MG PER DAY

REACTIONS (3)
  - DYSPNOEA [None]
  - VISION BLURRED [None]
  - WEIGHT INCREASED [None]
